FAERS Safety Report 5852971-4 (Version None)
Quarter: 2008Q3

REPORT INFORMATION
  Report Type: 
  Country: None (occurrence: None)
  Receive Date: 20080821
  Receipt Date: 20080813
  Transmission Date: 20090109
  Serious: Yes (Death, Hospitalization)
  Sender: FDA-Public Use
  Company Number: US-SANOFI-SYNTHELABO-A03200802109

PATIENT
  Age: 62 Year
  Sex: Female

DRUGS (8)
  1. ELOXATIN [Suspect]
     Indication: PANCREATIC CARCINOMA
     Route: 042
     Dates: start: 20080515
  2. SENOKOT [Concomitant]
     Indication: CONSTIPATION
     Dosage: UNK
     Route: 065
  3. FLUOROURACIL [Suspect]
     Indication: PANCREATIC CARCINOMA
     Route: 065
     Dates: start: 20080515
  4. TPN [Concomitant]
     Indication: DRUG USE FOR UNKNOWN INDICATION
     Dosage: UNK
     Route: 065
  5. PANCREATIC ENZYMES [Concomitant]
     Dosage: UNK
     Route: 065
  6. POTASSIUM SUPPLEMENTS [Concomitant]
     Indication: DRUG USE FOR UNKNOWN INDICATION
     Dosage: UNK
     Route: 065
  7. CELEBREX [Concomitant]
     Indication: DRUG USE FOR UNKNOWN INDICATION
     Dosage: UNK
     Route: 065
  8. LEUCOVORIN CALCIUM [Suspect]
     Route: 065
     Dates: start: 20080515

REACTIONS (12)
  - ALOPECIA [None]
  - ANOREXIA [None]
  - ASCITES [None]
  - COLITIS ISCHAEMIC [None]
  - DIARRHOEA [None]
  - DISEASE PROGRESSION [None]
  - INTESTINAL GANGRENE [None]
  - MALNUTRITION [None]
  - PNEUMONIA [None]
  - PULMONARY OEDEMA [None]
  - RESPIRATORY FAILURE [None]
  - STOMATITIS [None]
